FAERS Safety Report 18710677 (Version 1)
Quarter: 2021Q1

REPORT INFORMATION
  Report Type: Report from Study
  Country: US (occurrence: US)
  Receive Date: 20210107
  Receipt Date: 20210107
  Transmission Date: 20210419
  Serious: Yes (Hospitalization)
  Sender: FDA-Public Use
  Company Number: US-GILEAD-2020-0509757

PATIENT
  Age: 7 Year
  Sex: Male

DRUGS (21)
  1. ERYTHROMYCIN ETHYLSUCCINATE. [Concomitant]
     Active Substance: ERYTHROMYCIN ETHYLSUCCINATE
  2. IPRATROPIUM [Concomitant]
     Active Substance: IPRATROPIUM
  3. PULMOZYME [Concomitant]
     Active Substance: DORNASE ALFA
  4. LORATADINE. [Concomitant]
     Active Substance: LORATADINE
  5. CREON [Concomitant]
     Active Substance: PANCRELIPASE AMYLASE\PANCRELIPASE LIPASE\PANCRELIPASE PROTEASE
  6. PREDNISOLONE. [Concomitant]
     Active Substance: PREDNISOLONE
  7. AQUADEKS PEDIATRIC LIQUID [Concomitant]
     Active Substance: MINERALS\VITAMINS
  8. BOOST [Concomitant]
     Active Substance: DIETARY SUPPLEMENT
  9. DOCUSATE SODIUM. [Concomitant]
     Active Substance: DOCUSATE SODIUM
  10. VITAMIN D3 [Concomitant]
     Active Substance: CHOLECALCIFEROL
  11. CIPROFLOXACIN. [Concomitant]
     Active Substance: CIPROFLOXACIN
  12. LEVOFLOXACIN. [Concomitant]
     Active Substance: LEVOFLOXACIN
  13. OMEPRAZOLE. [Concomitant]
     Active Substance: OMEPRAZOLE
  14. QVAR [Concomitant]
     Active Substance: BECLOMETHASONE DIPROPIONATE
  15. HYPERSAL [Concomitant]
     Active Substance: SODIUM CHLORIDE
  16. BACITRACIN. [Concomitant]
     Active Substance: BACITRACIN
  17. MIRALAX [Concomitant]
     Active Substance: POLYETHYLENE GLYCOL 3350
  18. NYSTATIN. [Concomitant]
     Active Substance: NYSTATIN
  19. ORKAMBI [Concomitant]
     Active Substance: IVACAFTOR\LUMACAFTOR
  20. TOBRAMYCIN. [Concomitant]
     Active Substance: TOBRAMYCIN
  21. AZTREONAM LYSINE [Suspect]
     Active Substance: AZTREONAM LYSINE
     Indication: CYSTIC FIBROSIS
     Dosage: 75 MG, TID, ALTERNATE WITH INHALED TOBRAMYCIN, 28 D ON 28 D OFF + REPEAT
     Route: 055
     Dates: start: 20180406

REACTIONS (3)
  - Palpitations [Unknown]
  - Dyspnoea [Unknown]
  - Transaminases increased [Unknown]

NARRATIVE: CASE EVENT DATE: 20201226
